FAERS Safety Report 12532157 (Version 5)
Quarter: 2018Q1

REPORT INFORMATION
  Report Type: Spontaneous
  Country: US (occurrence: US)
  Receive Date: 20160706
  Receipt Date: 20180315
  Transmission Date: 20180508
  Serious: Yes (Hospitalization, Disabling, Other)
  Sender: FDA-Public Use
  Company Number: US-ENDO PHARMACEUTICALS INC.-2016-004281

PATIENT
  Age: 52 Year
  Sex: Male
  Weight: 83.9 kg

DRUGS (4)
  1. LEVITRA [Concomitant]
     Active Substance: VARDENAFIL HYDROCHLORIDE TRIHYDRATE
     Indication: CARDIOVASCULAR INSUFFICIENCY
     Dosage: UNK UNKNOWN, UNKNOWN
     Route: 065
     Dates: start: 2006, end: 2013
  2. ANDROGEL [Suspect]
     Active Substance: TESTOSTERONE
     Indication: ANDROGEN REPLACEMENT THERAPY
     Dosage: UNK UNKNOWN, DAILY
     Route: 065
     Dates: start: 2003, end: 200801
  3. ANDROGEL [Suspect]
     Active Substance: TESTOSTERONE
     Dosage: UNK UNKNOWN, DAILY
     Route: 065
     Dates: start: 200804, end: 2014
  4. TESTIM [Suspect]
     Active Substance: TESTOSTERONE
     Indication: ANDROGEN REPLACEMENT THERAPY
     Dosage: UNK UNKNOWN, DAILY
     Route: 062
     Dates: start: 2008, end: 2008

REACTIONS (12)
  - Myocardial infarction [Not Recovered/Not Resolved]
  - Syncope [Unknown]
  - Cerebrovascular accident [Not Recovered/Not Resolved]
  - Pancreatitis [Unknown]
  - Suicidal ideation [Unknown]
  - Hypertension [Unknown]
  - Depression [Unknown]
  - Hypothalamo-pituitary disorder [Not Recovered/Not Resolved]
  - Myocardial infarction [Not Recovered/Not Resolved]
  - Diverticulitis [Unknown]
  - Fall [Unknown]
  - Rib fracture [Unknown]

NARRATIVE: CASE EVENT DATE: 201011
